FAERS Safety Report 4488068-8 (Version None)
Quarter: 2004Q4

REPORT INFORMATION
  Report Type: 
  Country: None (occurrence: None)
  Receive Date: 20041028
  Receipt Date: 20040916
  Transmission Date: 20050328
  Serious: Yes (Other)
  Sender: FDA-Public Use
  Company Number: GB-GLAXOSMITHKLINE-B0345909A

PATIENT
  Age: 41 Year
  Sex: Male
  Weight: 100 kg

DRUGS (3)
  1. FLIXOTIDE [Suspect]
     Indication: ASTHMA
     Dosage: 2PUFF UNKNOWN
     Route: 055
     Dates: start: 20040104, end: 20040111
  2. SALBUTAMOL [Concomitant]
     Indication: ASTHMA
     Dosage: 2PUFF AS REQUIRED
     Route: 055
  3. FLUVIRIN [Concomitant]
     Indication: INFLUENZA IMMUNISATION
     Dosage: .5ML SINGLE DOSE
     Route: 058
     Dates: start: 20040102

REACTIONS (1)
  - OEDEMA GENITAL [None]
